FAERS Safety Report 19370728 (Version 1)
Quarter: 2021Q2

REPORT INFORMATION
  Report Type: Report from Study
  Country: FR (occurrence: FR)
  Receive Date: 20210603
  Receipt Date: 20210603
  Transmission Date: 20210717
  Serious: Yes (Hospitalization, Other)
  Sender: FDA-Public Use
  Company Number: FR-TAKEDA-2021TUS034215

PATIENT
  Age: 45 Year
  Sex: Female

DRUGS (8)
  1. DAPTOMYCINE [Concomitant]
     Active Substance: DAPTOMYCIN
     Indication: SEPTIC SHOCK
     Dosage: UNK
     Route: 065
     Dates: start: 202006, end: 202007
  2. CEFEPIME [Concomitant]
     Active Substance: CEFEPIME HYDROCHLORIDE
     Indication: SEPTIC SHOCK
     Dosage: UNK
     Route: 065
     Dates: start: 202006, end: 202007
  3. TEDUGLUTIDE [Suspect]
     Active Substance: TEDUGLUTIDE
     Indication: SHORT-BOWEL SYNDROME
     Dosage: 0.05 MILLIGRAM/KILOGRAM, QD, (TOTAL DAILY DOSE 2.25 MG, TED DAILY DOSES PER WEEK 7)
     Route: 065
     Dates: start: 20190203
  4. BISOPROLOL [Concomitant]
     Active Substance: BISOPROLOL
     Indication: CARDIAC FAILURE
     Dosage: 1.25 MILLIGRAM, QD
     Route: 048
     Dates: start: 202006, end: 202007
  5. TEDUGLUTIDE [Suspect]
     Active Substance: TEDUGLUTIDE
     Indication: SHORT-BOWEL SYNDROME
     Dosage: 0.05 MILLIGRAM/KILOGRAM, QD, (TOTAL DAILY DOSE 2.25 MG, TED DAILY DOSES PER WEEK 7)
     Route: 065
     Dates: start: 20190203
  6. TEDUGLUTIDE [Suspect]
     Active Substance: TEDUGLUTIDE
     Indication: SHORT-BOWEL SYNDROME
     Dosage: 0.05 MILLIGRAM/KILOGRAM, QD, (TOTAL DAILY DOSE 2.25 MG, TED DAILY DOSES PER WEEK 7)
     Route: 065
     Dates: start: 20190203
  7. TEDUGLUTIDE [Suspect]
     Active Substance: TEDUGLUTIDE
     Indication: SHORT-BOWEL SYNDROME
     Dosage: 0.05 MILLIGRAM/KILOGRAM, QD, (TOTAL DAILY DOSE 2.25 MG, TED DAILY DOSES PER WEEK 7)
     Route: 065
     Dates: start: 20190203
  8. FERINJECT [Concomitant]
     Active Substance: FERRIC CARBOXYMALTOSE
     Indication: ANAEMIA
     Dosage: 500 MILLIGRAM
     Route: 042
     Dates: start: 202006, end: 202007

REACTIONS (2)
  - Thrombophlebitis septic [Recovered/Resolved]
  - Thrombosis [Not Recovered/Not Resolved]

NARRATIVE: CASE EVENT DATE: 2019
